FAERS Safety Report 4426840-0 (Version None)
Quarter: 2004Q3

REPORT INFORMATION
  Report Type: 
  Country: None (occurrence: None)
  Receive Date: 20040816
  Receipt Date: 20040805
  Transmission Date: 20050211
  Serious: Yes (Disabling)
  Sender: FDA-Public Use
  Company Number: CH-GLAXOSMITHKLINE-B0342316A

PATIENT
  Age: 77 Year
  Sex: Female
  Weight: 42 kg

DRUGS (12)
  1. AUGMENTIN '125' [Suspect]
     Indication: LUNG INFECTION
     Dosage: 1875MG PER DAY
     Route: 048
     Dates: start: 20040518, end: 20040520
  2. TIENAM [Suspect]
     Dosage: 2G PER DAY
     Route: 042
     Dates: start: 20040516, end: 20040524
  3. INSULATARD NPH HUMAN [Concomitant]
     Indication: DIABETES MELLITUS
     Dosage: 20U PER DAY
     Route: 058
  4. PLAVIX [Concomitant]
     Indication: THROMBOSIS PROPHYLAXIS
     Dosage: 75MG PER DAY
     Route: 048
  5. NEXIUM [Concomitant]
     Dosage: 20MG PER DAY
     Route: 048
  6. SEROPRAM [Concomitant]
     Indication: DEPRESSION
     Dosage: 20MG PER DAY
     Route: 048
  7. METOPROLOL TARTRATE [Concomitant]
     Dosage: 25MG PER DAY
     Route: 048
  8. COZAAR [Concomitant]
     Dosage: 100MG PER DAY
     Route: 048
  9. TOREM [Concomitant]
     Dosage: 15MG PER DAY
     Route: 048
  10. MINITRAN [Concomitant]
     Dosage: 10MG PER DAY
     Route: 062
  11. RECORMON [Concomitant]
     Dosage: 1000U PER DAY
     Route: 058
  12. ATROVENT [Concomitant]
     Dosage: 20MCG PER DAY
     Route: 055

REACTIONS (8)
  - CONFUSIONAL STATE [None]
  - CONVULSION [None]
  - DIZZINESS [None]
  - HALLUCINATION [None]
  - HYPOGLYCAEMIC COMA [None]
  - MYOCLONUS [None]
  - RENAL FAILURE ACUTE [None]
  - SOMNOLENCE [None]
